FAERS Safety Report 5955233-X (Version None)
Quarter: 2008Q4

REPORT INFORMATION
  Report Type: 
  Country: None (occurrence: None)
  Receive Date: 20081117
  Receipt Date: 20081107
  Transmission Date: 20090506
  Serious: No
  Sender: FDA-Public Use
  Company Number: US-B.I. PHARMACEUTICALS,INC./RIDGEFIELD-2008-BP-16168BP

PATIENT
  Sex: Male

DRUGS (5)
  1. FLOMAX [Suspect]
  2. ALLOPURINOL [Concomitant]
  3. DIGITEK [Concomitant]
  4. WARFARIN SODIUM [Concomitant]
  5. LISINOPRIL [Concomitant]

REACTIONS (4)
  - DRUG INEFFECTIVE [None]
  - RHINORRHOEA [None]
  - URINARY INCONTINENCE [None]
  - URINE OUTPUT DECREASED [None]
